FAERS Safety Report 6687392-8 (Version None)
Quarter: 2010Q2

REPORT INFORMATION
  Report Type: 
  Country: None (occurrence: None)
  Receive Date: 20100415
  Receipt Date: 20100402
  Transmission Date: 20101027
  Serious: Yes (Other)
  Sender: FDA-Public Use
  Company Number: 1000010596

PATIENT
  Age: 50 Year
  Sex: Male

DRUGS (2)
  1. ESCITALOPRAM [Suspect]
     Indication: ANXIETY
     Dosage: 10 MG (10 MG, 1 IN 1 D), ORAL
     Route: 048
     Dates: start: 20090901, end: 20091101
  2. ESCITALOPRAM [Suspect]
     Indication: STRESS
     Dosage: 10 MG (10 MG, 1 IN 1 D), ORAL
     Route: 048
     Dates: start: 20090901, end: 20091101

REACTIONS (6)
  - DYSKINESIA [None]
  - FAMILY STRESS [None]
  - MUSCLE CONTRACTIONS INVOLUNTARY [None]
  - RESTLESS LEGS SYNDROME [None]
  - STRESS [None]
  - TREATMENT NONCOMPLIANCE [None]
